FAERS Safety Report 7078728-7 (Version None)
Quarter: 2010Q4

REPORT INFORMATION
  Report Type: 
  Country: None (occurrence: None)
  Receive Date: 20101101
  Receipt Date: 20101101
  Transmission Date: 20110411
  Serious: Yes (Death, Hospitalization)
  Sender: FDA-Public Use
  Company Number: None

PATIENT
  Age: 77 Year
  Sex: Female
  Weight: 79.3795 kg

DRUGS (1)
  1. METHOTREXATE [Suspect]
     Indication: B-CELL LYMPHOMA
     Dates: start: 20100101, end: 20100718

REACTIONS (1)
  - PRODUCT CONTAMINATION [None]
